FAERS Safety Report 21206445 (Version 1)
Quarter: 2022Q3

REPORT INFORMATION
  Report Type: Spontaneous
  Country: US (occurrence: None)
  Receive Date: 20220811
  Receipt Date: 20220811
  Transmission Date: 20221027
  Serious: Yes (Other)
  Sender: FDA-Public Use
  Company Number: None

PATIENT
  Age: 30 Year
  Sex: Female
  Weight: 75.3 kg

DRUGS (7)
  1. EGRIFTA SV [Suspect]
     Active Substance: TESAMORELIN ACETATE
     Indication: Lipodystrophy acquired
     Dosage: 2 MG DAILY SUBCUTANEOUS?
     Route: 058
     Dates: start: 20220302, end: 20220808
  2. EGRIFTA SV [Suspect]
     Active Substance: TESAMORELIN ACETATE
     Indication: HIV infection
  3. adapalene 0.1% cream [Concomitant]
     Dates: start: 20220510
  4. sumatriptan 100mg tablet [Concomitant]
     Dates: start: 20220421
  5. DOVATO [Concomitant]
     Active Substance: DOLUTEGRAVIR SODIUM\LAMIVUDINE
     Dates: start: 20220107
  6. nortriptyline 25mg capsule [Concomitant]
     Dates: start: 20220616
  7. polyethylene glycol powder [Concomitant]
     Dates: start: 20220309

REACTIONS (5)
  - Pruritus [None]
  - Skin discolouration [None]
  - Injection site induration [None]
  - Ear discomfort [None]
  - Nausea [None]
